FAERS Safety Report 23492633 (Version 3)
Quarter: 2024Q3

REPORT INFORMATION
  Report Type: Report from Study
  Country: CA (occurrence: CA)
  Receive Date: 20240207
  Receipt Date: 20240708
  Transmission Date: 20241016
  Serious: Yes (Hospitalization, Other)
  Sender: JOHNSON AND JOHNSON
  Company Number: CA-JNJFOC-20231216832

PATIENT
  Age: 18 Year
  Sex: Female

DRUGS (1)
  1. REMICADE [Suspect]
     Active Substance: INFLIXIMAB
     Indication: Crohn^s disease
     Dosage: BATCH: 23C047, EXPIRY: APR 2026?BATCH ; 23D106, EXPIRY: JUN-2026
     Route: 041
     Dates: start: 20200504

REACTIONS (4)
  - Crohn^s disease [Recovered/Resolved]
  - Hospitalisation [Recovered/Resolved]
  - Intestinal resection [Recovered/Resolved]
  - Off label use [Unknown]

NARRATIVE: CASE EVENT DATE: 20200504
